FAERS Safety Report 5031780-2 (Version None)
Quarter: 2006Q2

REPORT INFORMATION
  Report Type: 
  Country: None (occurrence: None)
  Receive Date: 20060621
  Receipt Date: 20060608
  Transmission Date: 20061013
  Serious: Yes (Other)
  Sender: FDA-Public Use
  Company Number: PHEH2006US07540

PATIENT
  Sex: Female

DRUGS (1)
  1. HYDROCHLOROTHIAZIDE [Suspect]
     Indication: HYPERTENSION
     Dosage: 50 MG, UNK
     Route: 048
     Dates: end: 20050101

REACTIONS (13)
  - BLOOD PRESSURE INADEQUATELY CONTROLLED [None]
  - BLOOD SODIUM DECREASED [None]
  - BLOOD UREA INCREASED [None]
  - CLAVICLE FRACTURE [None]
  - FALL [None]
  - HEART RATE INCREASED [None]
  - HIP ARTHROPLASTY [None]
  - IMPAIRED HEALING [None]
  - KNEE ARTHROPLASTY [None]
  - MUSCLE SPASMS [None]
  - OSTEOARTHRITIS [None]
  - RENAL IMPAIRMENT [None]
  - TENDONITIS [None]
